FAERS Safety Report 5056042-9 (Version None)
Quarter: 2006Q2

REPORT INFORMATION
  Report Type: 
  Country: None (occurrence: None)
  Receive Date: 20060616
  Receipt Date: 20060505
  Transmission Date: 20061013
  Serious: No
  Sender: FDA-Public Use
  Company Number: 2006US001126

PATIENT
  Age: 82 Year
  Sex: Male

DRUGS (6)
  1. VESICARE [Suspect]
     Indication: HYPERTONIC BLADDER
     Dosage: 5 MG ORAL
     Route: 048
  2. DILTESSAR (DILTIAZEM HYDROCHLORIDE) [Concomitant]
  3. ENALAPRIL MALEATE [Concomitant]
  4. NIZATIDINE [Concomitant]
  5. PLAVIX [Concomitant]
  6. CRESTOR [Concomitant]

REACTIONS (1)
  - DRUG INEFFECTIVE [None]
